FAERS Safety Report 21761605 (Version 4)
Quarter: 2023Q1

REPORT INFORMATION
  Report Type: Spontaneous
  Country: US (occurrence: US)
  Receive Date: 20221221
  Receipt Date: 20230131
  Transmission Date: 20230418
  Serious: No
  Sender: FDA-Public Use
  Company Number: US-PFIZER INC-202201380450

PATIENT
  Age: 58 Year
  Sex: Female
  Weight: 77.56 kg

DRUGS (4)
  1. PREMARIN [Suspect]
     Active Substance: ESTROGENS, CONJUGATED
     Indication: Hormone replacement therapy
     Dosage: 1.25 MG, DAILY
  2. PREMARIN [Suspect]
     Active Substance: ESTROGENS, CONJUGATED
     Indication: Endometriosis
  3. ESTROGEL [Suspect]
     Active Substance: ESTRADIOL
     Indication: Endometriosis
     Dosage: UNK
  4. ESTROGEL [Suspect]
     Active Substance: ESTRADIOL
     Indication: Hysterectomy

REACTIONS (13)
  - Thinking abnormal [Unknown]
  - Stress [Unknown]
  - Blood creatine phosphokinase increased [Unknown]
  - Decreased activity [Unknown]
  - Hypersomnia [Unknown]
  - Depression [Unknown]
  - Irritability [Unknown]
  - Decreased appetite [Unknown]
  - Gastrointestinal disorder [Unknown]
  - Cardiac disorder [Unknown]
  - Chest discomfort [Unknown]
  - Headache [Unknown]
  - Suspected COVID-19 [Unknown]
